FAERS Safety Report 9898335 (Version 1)
Quarter: 2014Q1

REPORT INFORMATION
  Report Type: Spontaneous
  Country: US (occurrence: US)
  Receive Date: 20140214
  Receipt Date: 20140214
  Transmission Date: 20141002
  Serious: No
  Sender: FDA-Public Use
  Company Number: US-PFIZER INC-2014037667

PATIENT
  Age: 62 Year
  Sex: Female

DRUGS (11)
  1. EFFEXOR XR [Suspect]
     Dosage: 75 MG, ONCE A DAY (QD)
     Route: 048
  2. ZYRTEC [Suspect]
     Dosage: 10 MG, ONCE A DAY
     Route: 048
  3. ZANTAC [Concomitant]
     Dosage: 300 MG, ONCE A DAY (1 TABLET)
     Route: 048
  4. VAGIFEM [Concomitant]
     Dosage: 10 UG,  ONCE DAILY FOR 14 DAYS AND THEN 2 TIMES PER WEEK FOR DURATION OF USE
     Route: 067
  5. TRAMADOL [Concomitant]
     Dosage: 50 MG,  EVERY 8 HOURS AS NEEDED
     Route: 048
  6. MOBIC [Concomitant]
     Dosage: 7.5 MG, ONCE A DAY
     Route: 048
  7. PRILOSEC [Concomitant]
     Dosage: 40 MG, ONCE A DAY
     Route: 048
  8. DIOVAN [Concomitant]
     Dosage: 320 MG, ONCE A DAY
     Route: 048
  9. TRAZODONE [Concomitant]
     Dosage: 50 MG, ONCE A DAY
     Route: 048
  10. TOPAMAX [Concomitant]
     Dosage: 50 MG,  3 TABLETS ONCE A DAY AT BEDTIME (QHS)
     Route: 048
  11. PREMPRO [Concomitant]
     Dosage: UNK

REACTIONS (9)
  - Atrophic vulvovaginitis [Unknown]
  - Essential hypertension [Unknown]
  - Hormone level abnormal [Unknown]
  - Menopause [Unknown]
  - Migraine [Unknown]
  - Gastrooesophageal reflux disease [Unknown]
  - Osteoarthritis [Unknown]
  - Insomnia [Unknown]
  - Rhinitis allergic [Unknown]
